FAERS Safety Report 25274726 (Version 1)
Quarter: 2025Q2

REPORT INFORMATION
  Report Type: Spontaneous
  Country: CN (occurrence: CN)
  Receive Date: 20250506
  Receipt Date: 20250506
  Transmission Date: 20250717
  Serious: Yes (Death, Other)
  Sender: AMGEN
  Company Number: CN-AMGEN-CHNSP2025086164

PATIENT
  Age: 51 Year
  Sex: Male

DRUGS (9)
  1. CARFILZOMIB [Suspect]
     Active Substance: CARFILZOMIB
     Indication: Plasma cell myeloma
     Route: 065
  2. BORTEZOMIB [Concomitant]
     Active Substance: BORTEZOMIB
     Indication: Plasma cell myeloma
     Route: 065
  3. LENALIDOMIDE [Concomitant]
     Active Substance: LENALIDOMIDE
     Indication: Plasma cell myeloma
     Route: 065
  4. POMALIDOMIDE [Concomitant]
     Active Substance: POMALIDOMIDE
     Indication: Plasma cell myeloma
     Route: 065
  5. SELINEXOR [Concomitant]
     Active Substance: SELINEXOR
     Indication: Plasma cell myeloma
     Route: 065
  6. LEVOFLOXACIN [Concomitant]
     Active Substance: LEVOFLOXACIN
     Indication: Prophylaxis
     Route: 048
  7. VORICONAZOLE [Concomitant]
     Active Substance: VORICONAZOLE
     Indication: Prophylaxis
     Route: 040
  8. CASPOFUNGIN [Concomitant]
     Active Substance: CASPOFUNGIN
     Indication: Prophylaxis
     Route: 040
  9. Immunoglobulin [Concomitant]
     Indication: Prophylaxis
     Route: 040

REACTIONS (5)
  - Plasma cell myeloma [Fatal]
  - Pancytopenia [Unknown]
  - Anaemia [Unknown]
  - Cytokine release syndrome [Recovering/Resolving]
  - Drug resistance [Unknown]
